FAERS Safety Report 8506562-7 (Version None)
Quarter: 2012Q3

REPORT INFORMATION
  Report Type: 
  Country: None (occurrence: None)
  Receive Date: 20120712
  Receipt Date: 20120705
  Transmission Date: 20120928
  Serious: Yes (Hospitalization, Other)
  Sender: FDA-Public Use
  Company Number: JP-ABBOTT-12P-087-0935089-00

PATIENT
  Age: 73 Year
  Sex: Female
  Weight: 49.4 kg

DRUGS (16)
  1. CELECOXIB [Concomitant]
     Indication: PRODUCT USED FOR UNKNOWN INDICATION
     Route: 048
     Dates: start: 20090512
  2. TACROLIMUS [Concomitant]
     Indication: PRODUCT USED FOR UNKNOWN INDICATION
     Dates: start: 20120123
  3. FOLIC ACID [Concomitant]
     Indication: PRODUCT USED FOR UNKNOWN INDICATION
     Route: 048
     Dates: start: 20090512
  4. SODIUM RISEDRONATE HYDRATE [Concomitant]
     Indication: PRODUCT USED FOR UNKNOWN INDICATION
     Route: 048
     Dates: start: 20090512
  5. METHOTREXATE [Concomitant]
     Route: 048
     Dates: start: 20100323
  6. HUMIRA [Suspect]
     Indication: RHEUMATOID ARTHRITIS
     Route: 058
     Dates: start: 20100608, end: 20120501
  7. METHOTREXATE [Concomitant]
     Dosage: TWICE A WEEK (10 MG, 2.5 MG)
     Route: 048
     Dates: start: 20091110, end: 20100201
  8. RHEUMATREX [Suspect]
     Indication: PRODUCT USED FOR UNKNOWN INDICATION
     Dosage: TWICE A WEEK (4 MG, 2 MG)
     Route: 048
     Dates: start: 20090512, end: 20101005
  9. PREDNISOLONE [Suspect]
     Indication: PRODUCT USED FOR UNKNOWN INDICATION
     Dosage: 6 MG DAILY
     Route: 048
     Dates: start: 20090512
  10. LANSOPRAZOLE [Concomitant]
     Indication: PRODUCT USED FOR UNKNOWN INDICATION
     Route: 048
  11. METHOTREXATE [Concomitant]
     Route: 048
     Dates: start: 20091006, end: 20091109
  12. METHOTREXATE [Concomitant]
     Indication: PRODUCT USED FOR UNKNOWN INDICATION
     Dosage: 4 MG ON WEDNESDAY, 2 MG ON THURSDAY
     Dates: start: 20090512, end: 20091005
  13. BUCILLAMINE [Concomitant]
     Dates: start: 20090707
  14. PROGRAF [Suspect]
     Indication: PRODUCT USED FOR UNKNOWN INDICATION
  15. BUCILLAMINE [Concomitant]
     Indication: PRODUCT USED FOR UNKNOWN INDICATION
     Route: 048
     Dates: start: 20090512, end: 20090706
  16. METHOTREXATE [Concomitant]
     Dosage: TWICE A WEEK (7.5 MG, 2.5 MG)
     Route: 048
     Dates: start: 20100202, end: 20100322

REACTIONS (4)
  - PAIN [None]
  - PAIN IN EXTREMITY [None]
  - GRIP STRENGTH DECREASED [None]
  - HERPES ZOSTER [None]
